FAERS Safety Report 22635711 (Version 1)
Quarter: 2023Q2

REPORT INFORMATION
  Report Type: Spontaneous
  Country: US (occurrence: None)
  Receive Date: 20230620
  Receipt Date: 20230620
  Transmission Date: 20230722
  Serious: No
  Sender: FDA-Public Use
  Company Number: None

PATIENT
  Age: 50 Year
  Weight: 81.19 kg

DRUGS (13)
  1. SCEMBLIX [Suspect]
     Active Substance: ASCIMINIB HYDROCHLORIDE
     Indication: Chronic lymphocytic leukaemia
     Dosage: FREQUENCY : DAILY;?
     Route: 048
     Dates: start: 202205
  2. SPRYCEL [Concomitant]
     Active Substance: DASATINIB
  3. ABIRATERONE [Concomitant]
     Active Substance: ABIRATERONE
  4. LONSURF [Concomitant]
     Active Substance: TIPIRACIL HYDROCHLORIDE\TRIFLURIDINE
  5. PROAIR HFA [Concomitant]
     Active Substance: ALBUTEROL SULFATE
  6. PROTONIX [Concomitant]
     Active Substance: PANTOPRAZOLE SODIUM
  7. ALPRAZOLAM [Concomitant]
     Active Substance: ALPRAZOLAM
  8. METOPROLOL [Concomitant]
     Active Substance: METOPROLOL
  9. METOPROLOL [Concomitant]
     Active Substance: METOPROLOL
  10. DRONABINOL [Concomitant]
     Active Substance: DRONABINOL
  11. AMLODIPINE [Concomitant]
     Active Substance: AMLODIPINE BESYLATE
  12. ASPIRIN [Concomitant]
     Active Substance: ASPIRIN
  13. BOSULIF [Concomitant]
     Active Substance: BOSUTINIB MONOHYDRATE

REACTIONS (1)
  - Hospitalisation [None]
